FAERS Safety Report 5915900-0 (Version None)
Quarter: 2008Q4

REPORT INFORMATION
  Report Type: 
  Country: None (occurrence: None)
  Receive Date: 20081010
  Receipt Date: 20081002
  Transmission Date: 20090506
  Serious: Yes (Death, Other)
  Sender: FDA-Public Use
  Company Number: US-PFIZER INC-2008083751

PATIENT
  Sex: Female

DRUGS (5)
  1. LYRICA [Suspect]
     Indication: FIBROMYALGIA
     Dosage: TEXT:150MG BID EVERYDAY TDD:300MG
     Dates: start: 20080812
  2. LORTAB [Concomitant]
  3. MEDROL [Concomitant]
  4. MYCOLOG [Concomitant]
  5. AUGMENTIN '125' [Concomitant]

REACTIONS (4)
  - DEATH [None]
  - MALAISE [None]
  - RESPIRATORY DISTRESS [None]
  - VOMITING [None]
